FAERS Safety Report 25564687 (Version 1)
Quarter: 2025Q3

REPORT INFORMATION
  Report Type: Spontaneous
  Country: US (occurrence: None)
  Receive Date: 20250715
  Receipt Date: 20250715
  Transmission Date: 20251021
  Serious: Yes (Hospitalization)
  Sender: FDA-CTU
  Company Number: None

PATIENT
  Sex: Female

DRUGS (2)
  1. ICATIBANT [Suspect]
     Active Substance: ICATIBANT ACETATE
     Dates: start: 20200109
  2. ORLADEYO [Suspect]
     Active Substance: BEROTRALSTAT HYDROCHLORIDE

REACTIONS (6)
  - Drug ineffective [None]
  - Hereditary angioedema [None]
  - Swollen tongue [None]
  - Peripheral swelling [None]
  - Nervousness [None]
  - Obstructive airways disorder [None]
